FAERS Safety Report 8944904 (Version 1)
Quarter: 2012Q4

REPORT INFORMATION
  Report Type: 
  Country: US (occurrence: US)
  Receive Date: 20121204
  Receipt Date: 20121204
  Transmission Date: 20130627
  Serious: No
  Sender: FDA-Public Use
  Company Number: US-AMGEN-USASP2012060641

PATIENT
  Age: 60 Year
  Sex: Male

DRUGS (2)
  1. ENBREL [Suspect]
     Indication: PSORIASIS
     Dosage: 50 mg, qwk
     Dates: start: 20111228
  2. ENBREL [Suspect]
     Indication: PSORIATIC ARTHROPATHY

REACTIONS (5)
  - Renal function test abnormal [Recovered/Resolved]
  - Arthralgia [Not Recovered/Not Resolved]
  - Medication error [Not Recovered/Not Resolved]
  - Walking aid user [Not Recovered/Not Resolved]
  - Psoriasis [Not Recovered/Not Resolved]
